FAERS Safety Report 16366911 (Version 1)
Quarter: 2019Q2

REPORT INFORMATION
  Report Type: Spontaneous
  Country: US (occurrence: US)
  Receive Date: 20190529
  Receipt Date: 20190529
  Transmission Date: 20190711
  Serious: No
  Sender: FDA-Public Use
  Company Number: US-BAYER-2019-098699

PATIENT
  Sex: Female

DRUGS (2)
  1. MIRENA [Suspect]
     Active Substance: LEVONORGESTREL
     Indication: BLOOD OESTROGEN INCREASED
  2. MIRENA [Suspect]
     Active Substance: LEVONORGESTREL
     Indication: BLOOD OESTROGEN INCREASED
     Dosage: 20 MCG/24HR, CONT
     Route: 015
     Dates: start: 20190418, end: 201905

REACTIONS (3)
  - Device use issue [None]
  - Rash pruritic [Not Recovered/Not Resolved]
  - Off label use [None]

NARRATIVE: CASE EVENT DATE: 20190418
